FAERS Safety Report 5105620-7 (Version None)
Quarter: 2006Q3

REPORT INFORMATION
  Report Type: 
  Country: None (occurrence: None)
  Receive Date: 20060915
  Receipt Date: 20060905
  Transmission Date: 20061208
  Serious: Yes (Death)
  Sender: FDA-Public Use
  Company Number: SE-JNJFOC-20060901097

PATIENT
  Age: 46 Year
  Sex: Male
  Weight: 80 kg

DRUGS (12)
  1. DURAGESIC-100 [Suspect]
     Route: 062
  2. DURAGESIC-100 [Suspect]
     Indication: ORAL PAIN
     Route: 062
  3. FLUCONAZOLE [Interacting]
     Indication: ORAL FUNGAL INFECTION
     Route: 048
  4. MORPHINE [Concomitant]
     Route: 048
  5. DICLOFENAC [Concomitant]
     Route: 048
  6. PARACETAMOL [Concomitant]
     Route: 048
  7. OXAZEPAM [Concomitant]
     Route: 048
  8. ZOLPIDEM TARTRATE [Concomitant]
     Route: 048
  9. NYSTATIN [Concomitant]
  10. LIDOCAINE [Concomitant]
     Route: 048
  11. LACTULOSE [Concomitant]
     Route: 048
  12. METOCLOPRAMIDE [Concomitant]
     Route: 054

REACTIONS (4)
  - DRUG INTERACTION [None]
  - DYSPHAGIA [None]
  - NARCOTIC INTOXICATION [None]
  - RESPIRATORY DEPRESSION [None]
